FAERS Safety Report 24179127 (Version 1)
Quarter: 2024Q3

REPORT INFORMATION
  Report Type: Spontaneous
  Country: US (occurrence: US)
  Receive Date: 20240806
  Receipt Date: 20240806
  Transmission Date: 20241016
  Serious: No
  Sender: BAYER
  Company Number: US-BAYER-2024A110979

PATIENT
  Sex: Female

DRUGS (1)
  1. MIRALAX [Suspect]
     Active Substance: POLYETHYLENE GLYCOL 3350
     Dosage: 21 CAPFULS OF MIRALAX DOSE
     Route: 048

REACTIONS (2)
  - Off label use [Recovered/Resolved]
  - Adverse event [Recovering/Resolving]
